FAERS Safety Report 7358635-2 (Version None)
Quarter: 2011Q1

REPORT INFORMATION
  Report Type: 
  Country: None (occurrence: None)
  Receive Date: 20110317
  Receipt Date: 20110308
  Transmission Date: 20110831
  Serious: No
  Sender: FDA-Public Use
  Company Number: CA-ELI_LILLY_AND_COMPANY-CA201103002411

PATIENT
  Sex: Male

DRUGS (4)
  1. ZYPREXA [Suspect]
     Indication: MAJOR DEPRESSION
     Dosage: 2.5 MG, DAILY (1/D)
     Route: 048
  2. ZOLOFT [Concomitant]
     Dosage: 125 MG, DAILY (1/D)
     Route: 048
  3. ZOLOFT [Concomitant]
     Dosage: 100 MG, DAILY (1/D)
     Route: 048
  4. ATENOLOL [Concomitant]
     Dosage: 50 MG, UNK

REACTIONS (7)
  - DIABETES MELLITUS [None]
  - BLOOD UREA INCREASED [None]
  - OFF LABEL USE [None]
  - BLOOD TRIGLYCERIDES INCREASED [None]
  - BLOOD CREATININE INCREASED [None]
  - HAEMATURIA [None]
  - HYPERGLYCAEMIA [None]
